FAERS Safety Report 6360953-1 (Version None)
Quarter: 2009Q3

REPORT INFORMATION
  Report Type: 
  Country: None (occurrence: None)
  Receive Date: 20090918
  Receipt Date: 20090914
  Transmission Date: 20100115
  Serious: Yes (Hospitalization)
  Sender: FDA-Public Use
  Company Number: FR-BRISTOL-MYERS SQUIBB COMPANY-14780803

PATIENT
  Age: 77 Year
  Sex: Male

DRUGS (4)
  1. COAPROVEL TABS [Suspect]
     Route: 048
     Dates: end: 20090814
  2. CORDARONE [Suspect]
     Route: 048
     Dates: start: 20081001, end: 20090814
  3. BISOPROLOL [Suspect]
     Route: 048
     Dates: end: 20090814
  4. PREVISCAN [Concomitant]
     Dates: start: 20060101

REACTIONS (2)
  - ALVEOLITIS [None]
  - INTERSTITIAL LUNG DISEASE [None]
